FAERS Safety Report 4370491-3 (Version None)
Quarter: 2004Q2

REPORT INFORMATION
  Report Type: 
  Country: None (occurrence: None)
  Receive Date: 20040527
  Receipt Date: 20040517
  Transmission Date: 20050107
  Serious: Yes (Hospitalization)
  Sender: FDA-Public Use
  Company Number: 2004-BP-03831AU

PATIENT
  Age: 75 Year
  Sex: Female

DRUGS (5)
  1. MOBIC [Suspect]
     Indication: ARTHRALGIA
     Dosage: 15 MG (15 MG, 15 MG DAILY), PO
     Route: 048
     Dates: start: 20031215
  2. LITHIUM (LITHIUM) [Suspect]
     Indication: BIPOLAR I DISORDER
     Dosage: 375 MG (250 MG, 375 MG DAILY), PO
     Route: 048
  3. LASIX [Suspect]
     Dosage: 40 MG (40 MG, 40MG DAILY), PO
     Route: 048
  4. COVERSYL (PERINDOPRIL) [Concomitant]
  5. ZOCOR [Concomitant]

REACTIONS (1)
  - RENAL FAILURE [None]
